FAERS Safety Report 9937419 (Version 1)
Quarter: 2014Q1

REPORT INFORMATION
  Report Type: Report from Study
  Country: US (occurrence: US)
  Receive Date: 20140303
  Receipt Date: 20140303
  Transmission Date: 20141002
  Serious: Yes (Other)
  Sender: FDA-Public Use
  Company Number: US-ROCHE-1352880

PATIENT
  Sex: Male

DRUGS (10)
  1. AVASTIN [Suspect]
     Indication: CHOROIDAL NEOVASCULARISATION
     Dosage: OD
     Route: 065
     Dates: start: 20120718
  2. AVASTIN [Suspect]
     Indication: RETINAL OEDEMA
     Dosage: OS
     Route: 065
     Dates: start: 20120725, end: 20130419
  3. VITAMIN D3 [Concomitant]
     Route: 065
  4. ZOCOR [Concomitant]
  5. FLOMAX (UNITED STATES) [Concomitant]
     Route: 065
  6. CLARITIN-D [Concomitant]
     Dosage: PRN
     Route: 065
  7. ZYMAXID [Concomitant]
     Dosage: DOSE: 0.5%, FREQUENCY: 3 DAYS BEFORE, DAY OF AND 3 DAYS AFTER EACH TREATMENTBOTH EYES
     Route: 065
  8. BETADINE [Concomitant]
     Dosage: EXTRA BETADINE GIVEN AT THE TIME OF INJECTION
     Route: 065
  9. LIDOCAINE [Concomitant]
     Route: 057
  10. ASPIRIN [Concomitant]
     Dosage: OCCASIONALLY
     Route: 065

REACTIONS (8)
  - Retinal oedema [Unknown]
  - Retinal haemorrhage [Unknown]
  - Vitreous degeneration [Unknown]
  - Metamorphopsia [Unknown]
  - Cataract [Unknown]
  - Retinal tear [Unknown]
  - Off label use [Unknown]
  - Vitreous detachment [Unknown]
